FAERS Safety Report 8274848-X (Version None)
Quarter: 2012Q2

REPORT INFORMATION
  Report Type: 
  Country: None (occurrence: None)
  Receive Date: 20120411
  Receipt Date: 20120404
  Transmission Date: 20120825
  Serious: Yes (Other)
  Sender: FDA-Public Use
  Company Number: PT-JNJFOC-20120400511

PATIENT
  Sex: Male

DRUGS (10)
  1. STELARA [Suspect]
     Route: 058
  2. STELARA [Suspect]
     Route: 058
  3. STELARA [Suspect]
     Route: 058
  4. STELARA [Suspect]
     Route: 058
  5. STELARA [Suspect]
     Dosage: 2 MONTHS AGO
     Route: 058
  6. STELARA [Suspect]
     Indication: PSORIATIC ARTHROPATHY
     Route: 058
  7. STELARA [Suspect]
     Route: 058
  8. CORTICOSTEROIDS [Concomitant]
     Indication: PRODUCT USED FOR UNKNOWN INDICATION
     Route: 048
  9. STELARA [Suspect]
     Indication: PSORIASIS
     Dosage: 2 MONTHS AGO
     Route: 058
  10. METHOTREXATE [Concomitant]
     Indication: PRODUCT USED FOR UNKNOWN INDICATION
     Route: 065

REACTIONS (3)
  - OFF LABEL USE [None]
  - THERAPEUTIC RESPONSE UNEXPECTED [None]
  - TRANSAMINASES INCREASED [None]
